FAERS Safety Report 18643611 (Version 1)
Quarter: 2020Q4

REPORT INFORMATION
  Report Type: Spontaneous
  Country: US (occurrence: US)
  Receive Date: 20201221
  Receipt Date: 20201221
  Transmission Date: 20210114
  Serious: No
  Sender: FDA-Public Use
  Company Number: US-BIOHAVEN PHARMACEUTICALS-2020BHV00418

PATIENT
  Sex: Male

DRUGS (1)
  1. NURTEC ODT [Suspect]
     Active Substance: RIMEGEPANT SULFATE
     Indication: MIGRAINE
     Dosage: UNK, 2 TO 3 TIMES PER WEEK
     Dates: start: 2020

REACTIONS (5)
  - Nasal congestion [Recovering/Resolving]
  - Cough [Recovering/Resolving]
  - Rhinorrhoea [Recovering/Resolving]
  - Oropharyngeal pain [Recovering/Resolving]
  - Palatal swelling [Recovering/Resolving]

NARRATIVE: CASE EVENT DATE: 202008
